FAERS Safety Report 10133529 (Version 3)
Quarter: 2014Q2

REPORT INFORMATION
  Report Type: Spontaneous
  Country: US (occurrence: US)
  Receive Date: 20140428
  Receipt Date: 20140617
  Transmission Date: 20141212
  Serious: Yes (Other)
  Sender: FDA-Public Use
  Company Number: US-ASTRAZENECA-2010SE60054

PATIENT
  Age: 22357 Day
  Sex: Female
  Weight: 49 kg

DRUGS (12)
  1. SYMBICORT [Suspect]
     Indication: ASTHMA
     Dosage: 160/4.5 MCG, TWO TIMES A DAY
     Route: 055
     Dates: start: 20101219, end: 20101219
  2. RHINOCORT AQUA [Suspect]
     Indication: HYPERSENSITIVITY
     Dosage: TWO SPRAYS IN EACH NOSTRILS DAILY
     Route: 045
     Dates: end: 2013
  3. RHINOCORT AQUA [Suspect]
     Indication: HYPERSENSITIVITY
     Route: 045
  4. PULMICORT [Suspect]
     Indication: ASTHMA PROPHYLAXIS
     Route: 055
  5. PROPULSID [Concomitant]
     Indication: HYPERTENSION
  6. PREVACID [Concomitant]
     Indication: GASTROOESOPHAGEAL REFLUX DISEASE
  7. BENICAR [Concomitant]
     Indication: HYPERTENSION
  8. SINGULAIR [Concomitant]
     Indication: HYPERSENSITIVITY
  9. CRESTOR [Concomitant]
     Indication: BLOOD CHOLESTEROL INCREASED
  10. ZYRTEC [Concomitant]
     Indication: HYPERSENSITIVITY
  11. PLAQUENIL [Concomitant]
  12. RESTASIS [Concomitant]
     Indication: DRY EYE

REACTIONS (12)
  - Nasal septum perforation [Unknown]
  - Asthenia [Recovered/Resolved]
  - Sinusitis [Unknown]
  - Spondylitis [Unknown]
  - Intervertebral disc protrusion [Unknown]
  - Nasal congestion [Unknown]
  - Nasal septum disorder [Unknown]
  - Presyncope [Unknown]
  - Tremor [Recovered/Resolved]
  - Nausea [Recovered/Resolved]
  - Dizziness [Recovered/Resolved]
  - Intentional product misuse [Unknown]
